FAERS Safety Report 8489277-3 (Version None)
Quarter: 2012Q3

REPORT INFORMATION
  Report Type: 
  Country: None (occurrence: None)
  Receive Date: 20120705
  Receipt Date: 20120627
  Transmission Date: 20120928
  Serious: Yes (Other)
  Sender: FDA-Public Use
  Company Number: FR-GLAXOSMITHKLINE-B0811510A

PATIENT
  Age: 45 Year
  Sex: Male

DRUGS (1)
  1. NICOTINE [Suspect]
     Indication: EX-TOBACCO USER
     Route: 062

REACTIONS (2)
  - HALLUCINATION [None]
  - INCORRECT DRUG ADMINISTRATION DURATION [None]
